FAERS Safety Report 15881308 (Version 1)
Quarter: 2019Q1

REPORT INFORMATION
  Report Type: Spontaneous
  Country: US (occurrence: US)
  Receive Date: 20190128
  Receipt Date: 20190128
  Transmission Date: 20190417
  Serious: No
  Sender: FDA-Public Use
  Company Number: US-BRECKENRIDGE PHARMACEUTICAL, INC.-2061838

PATIENT
  Sex: Female

DRUGS (1)
  1. ALPRAZOLAM 2 MG TABLETS (ANDA 207507) [Suspect]
     Active Substance: ALPRAZOLAM
     Route: 048

REACTIONS (3)
  - Product taste abnormal [None]
  - Drug ineffective [None]
  - Product supply issue [None]
